FAERS Safety Report 13330122 (Version 2)
Quarter: 2017Q2

REPORT INFORMATION
  Report Type: Spontaneous
  Country: US (occurrence: US)
  Receive Date: 20170313
  Receipt Date: 20170418
  Transmission Date: 20170830
  Serious: Yes (Other)
  Sender: FDA-Public Use
  Company Number: US-PFIZER INC-2017101301

PATIENT
  Age: 41 Year
  Sex: Female
  Weight: 44 kg

DRUGS (3)
  1. DILANTIN [Suspect]
     Active Substance: PHENYTOIN
     Dosage: UNK
     Dates: start: 1971, end: 200708
  2. DILANTIN [Suspect]
     Active Substance: PHENYTOIN
     Indication: SEIZURE
     Dosage: 200 MG, DAILY (100MG CAPSULES, 2 PER DAY)
     Dates: end: 200707
  3. PHENOBARBITAL. [Concomitant]
     Active Substance: PHENOBARBITAL
     Indication: SEIZURE
     Dosage: UNK
     Dates: end: 1991

REACTIONS (16)
  - Renal disorder [Unknown]
  - Paralysis [Unknown]
  - Neck pain [Unknown]
  - Madarosis [Unknown]
  - Heart rate irregular [Unknown]
  - Memory impairment [Unknown]
  - Concussion [Unknown]
  - Arthropathy [Not Recovered/Not Resolved]
  - Tooth loss [Not Recovered/Not Resolved]
  - Bone disorder [Not Recovered/Not Resolved]
  - Pain [Unknown]
  - Musculoskeletal chest pain [Unknown]
  - Tooth disorder [Not Recovered/Not Resolved]
  - Joint dislocation [Unknown]
  - Joint range of motion decreased [Unknown]
  - Alopecia [Unknown]
